FAERS Safety Report 5912273-4 (Version None)
Quarter: 2008Q4

REPORT INFORMATION
  Report Type: 
  Country: None (occurrence: None)
  Receive Date: 20081008
  Receipt Date: 20080929
  Transmission Date: 20090506
  Serious: Yes (Hospitalization)
  Sender: FDA-Public Use
  Company Number: D0058867A

PATIENT
  Sex: Male
  Weight: 78 kg

DRUGS (6)
  1. LEUKERAN [Suspect]
     Dosage: 8MG PER DAY
     Route: 048
     Dates: start: 20070928, end: 20080313
  2. PANTOZOL [Concomitant]
     Dosage: 40MG PER DAY
     Route: 048
     Dates: start: 20060601, end: 20080406
  3. PREDNI-H-TABLINEN [Concomitant]
     Dosage: 20MG PER DAY
     Route: 048
     Dates: start: 20080229, end: 20080407
  4. TAMSULOSIN HCL [Concomitant]
     Dosage: 400MCG PER DAY
     Route: 048
  5. PREDNI H [Concomitant]
     Route: 048
     Dates: start: 20070928, end: 20080201
  6. PREDNISOLON [Concomitant]
     Route: 065
     Dates: start: 20080108, end: 20080124

REACTIONS (1)
  - ANAEMIA HAEMOLYTIC AUTOIMMUNE [None]
